FAERS Safety Report 9670965 (Version 1)
Quarter: 2013Q4

REPORT INFORMATION
  Report Type: Spontaneous
  Country: GB (occurrence: None)
  Receive Date: 20131104
  Receipt Date: 20131104
  Transmission Date: 20140711
  Serious: Yes (Other)
  Sender: FDA-Public Use
  Company Number: AUR-APL-2013-08954

PATIENT
  Age: 78 Year
  Sex: Female

DRUGS (2)
  1. RANITIDINE (RANITIDINE) [Suspect]
     Indication: PRODUCT USED FOR UNKNOWN INDICATION
     Dosage: 300 MG (150 MG 2 IN 1 D)
     Route: 048
     Dates: start: 20131001, end: 20131010
  2. DICLOFENAC (DICLOFENAC) [Suspect]
     Indication: PAIN IN EXTREMITY
     Dosage: 150 MG (50 MG 3 IN 1D)
     Route: 048
     Dates: start: 20131001, end: 20131010

REACTIONS (4)
  - Angioedema [None]
  - Rash erythematous [None]
  - Pruritus [None]
  - Lip swelling [None]
